FAERS Safety Report 23030556 (Version 1)
Quarter: 2023Q4

REPORT INFORMATION
  Report Type: Spontaneous
  Country: NL (occurrence: NL)
  Receive Date: 20231005
  Receipt Date: 20231005
  Transmission Date: 20240110
  Serious: Yes (Other)
  Sender: FDA-Public Use
  Company Number: NL-LRB-00909207

PATIENT
  Age: 7 Month
  Sex: Female

DRUGS (2)
  1. PAROXETINE [Suspect]
     Active Substance: PAROXETINE
     Indication: Anxiety
     Dosage: 30 MILLIGRAM, ONCE A DAY (1X DAAGS 30 MG)
     Route: 065
     Dates: start: 20230101
  2. PAROXETINE [Suspect]
     Active Substance: PAROXETINE
     Indication: Perinatal depression

REACTIONS (5)
  - Decreased appetite [Not Recovered/Not Resolved]
  - Haematoma [Not Recovered/Not Resolved]
  - Growth retardation [Unknown]
  - Anaemia [Unknown]
  - Exposure via breast milk [Unknown]
